FAERS Safety Report 16203986 (Version 1)
Quarter: 2019Q2

REPORT INFORMATION
  Report Type: Spontaneous
  Country: IN (occurrence: IN)
  Receive Date: 20190416
  Receipt Date: 20190416
  Transmission Date: 20190711
  Serious: Yes (Other)
  Sender: FDA-Public Use
  Company Number: IN-HERITAGE PHARMACEUTICALS-2019HTG00135

PATIENT
  Age: 30 Year
  Sex: Female

DRUGS (2)
  1. LITHIUM CARBONATE. [Suspect]
     Active Substance: LITHIUM CARBONATE
     Indication: DEPRESSION
     Dosage: TAKEN ^REGULARLY^
     Route: 065
  2. PAROXETINE. [Concomitant]
     Active Substance: PAROXETINE
     Indication: DEPRESSION
     Dosage: TAKEN ^REGULARLY^
     Route: 065

REACTIONS (2)
  - Depression [Recovered/Resolved]
  - Hypothyroidism [Recovered/Resolved]
